FAERS Safety Report 22326016 (Version 1)
Quarter: 2023Q2

REPORT INFORMATION
  Report Type: Spontaneous
  Country: CN (occurrence: CN)
  Receive Date: 20230516
  Receipt Date: 20230516
  Transmission Date: 20230721
  Serious: Yes (Hospitalization, Other)
  Sender: FDA-Public Use
  Company Number: CN-SA-2023SA145832

PATIENT
  Age: 48 Year
  Sex: Female

DRUGS (6)
  1. OXALIPLATIN [Suspect]
     Active Substance: OXALIPLATIN
     Indication: Cholangiocarcinoma
     Dosage: 200 MG, QCY (7 CYCLES)
     Dates: start: 202110
  2. OXALIPLATIN [Suspect]
     Active Substance: OXALIPLATIN
     Indication: Metastases to lymph nodes
  3. FLUOROURACIL [Suspect]
     Active Substance: FLUOROURACIL
     Indication: Cholangiocarcinoma
     Dosage: 4000 MG, QCY (7 CYCLES)
     Dates: start: 202110
  4. FLUOROURACIL [Suspect]
     Active Substance: FLUOROURACIL
     Indication: Metastases to lymph nodes
  5. LEUCOVORIN CALCIUM [Suspect]
     Active Substance: LEUCOVORIN CALCIUM
     Indication: Cholangiocarcinoma
     Dosage: 0.7 G, QCY (7 CYCLES)
     Dates: start: 202110
  6. LEUCOVORIN CALCIUM [Suspect]
     Active Substance: LEUCOVORIN CALCIUM
     Indication: Metastases to lymph nodes

REACTIONS (20)
  - Respiratory failure [Recovered/Resolved]
  - Interstitial lung disease [Recovered/Resolved]
  - Hyperpyrexia [Unknown]
  - Chills [Recovered/Resolved]
  - Flushing [Recovered/Resolved]
  - Face oedema [Recovered/Resolved]
  - Dyspnoea [Recovered/Resolved]
  - Rash erythematous [Recovered/Resolved]
  - Chest discomfort [Recovered/Resolved]
  - Temperature intolerance [Recovered/Resolved]
  - Productive cough [Recovered/Resolved]
  - Rales [Recovered/Resolved]
  - Pleural effusion [Recovered/Resolved]
  - Sinus tachycardia [Recovered/Resolved]
  - Type IV hypersensitivity reaction [Recovered/Resolved]
  - Type I hypersensitivity [Recovered/Resolved]
  - Leukopenia [Unknown]
  - Nausea [Unknown]
  - Vomiting [Unknown]
  - Pyrexia [Recovered/Resolved]

NARRATIVE: CASE EVENT DATE: 20210101
